FAERS Safety Report 16723282 (Version 2)
Quarter: 2019Q3

REPORT INFORMATION
  Report Type: Report from Study
  Country: None (occurrence: CA)
  Receive Date: 20190821
  Receipt Date: 20190923
  Transmission Date: 20191005
  Serious: Yes (Hospitalization, Other)
  Sender: FDA-Public Use
  Company Number: CA-ABBVIE-19K-028-2894962-00

PATIENT
  Sex: Female

DRUGS (2)
  1. LUPRON DEPOT [Suspect]
     Active Substance: LEUPROLIDE ACETATE
     Indication: UTERINE LEIOMYOMA
     Route: 030
     Dates: start: 201903, end: 2019
  2. LUPRON DEPOT [Suspect]
     Active Substance: LEUPROLIDE ACETATE
     Route: 030
     Dates: start: 20190813

REACTIONS (10)
  - Heart valve operation [Recovered/Resolved]
  - Asthenia [Unknown]
  - Palpitations [Unknown]
  - Pericardial effusion [Unknown]
  - Dizziness [Unknown]
  - Fatigue [Unknown]
  - Syncope [Unknown]
  - Tachyarrhythmia [Unknown]
  - Menorrhagia [Unknown]
  - Pallor [Unknown]

NARRATIVE: CASE EVENT DATE: 2019
